FAERS Safety Report 6318083-0 (Version None)
Quarter: 2009Q3

REPORT INFORMATION
  Report Type: 
  Country: None (occurrence: None)
  Receive Date: 20090821
  Receipt Date: 20090811
  Transmission Date: 20100115
  Serious: Yes (Hospitalization)
  Sender: FDA-Public Use
  Company Number: GB-AMGEN-UK359775

PATIENT
  Sex: Male

DRUGS (5)
  1. PANITUMUMAB [Suspect]
     Indication: PRE-EXISTING DISEASE
     Route: 065
  2. EPIRUBICIN [Concomitant]
     Route: 065
  3. OXALIPLATIN [Concomitant]
     Route: 065
  4. CAPECITABINE [Concomitant]
     Route: 065
     Dates: end: 20090810
  5. RAMIPRIL [Concomitant]
     Route: 065

REACTIONS (2)
  - ATRIAL FIBRILLATION [None]
  - HYPOMAGNESAEMIA [None]
